FAERS Safety Report 10503267 (Version 1)
Quarter: 2014Q4

REPORT INFORMATION
  Report Type: Spontaneous
  Country: US (occurrence: US)
  Receive Date: 20141008
  Receipt Date: 20141008
  Transmission Date: 20150528
  Serious: Yes (Hospitalization, Other)
  Sender: FDA-Public Use
  Company Number: US-AMGEN-USASP2014076031

PATIENT
  Age: 74 Year
  Sex: Female

DRUGS (2)
  1. ENBREL [Suspect]
     Active Substance: ETANERCEPT
     Indication: PSORIATIC ARTHROPATHY
     Dosage: 25 MG, 2 TIMES/WK
     Route: 065
     Dates: start: 19990101, end: 201403
  2. ENBREL [Suspect]
     Active Substance: ETANERCEPT
     Indication: PSORIASIS

REACTIONS (24)
  - Pneumonia [Recovered/Resolved]
  - Pruritus [Recovered/Resolved]
  - Bile duct stent insertion [Recovered/Resolved]
  - Abdominal distension [Not Recovered/Not Resolved]
  - Decreased appetite [Not Recovered/Not Resolved]
  - Cardiac pacemaker insertion [Unknown]
  - Lethargy [Not Recovered/Not Resolved]
  - Emotional disorder [Not Recovered/Not Resolved]
  - Yellow skin [Recovered/Resolved]
  - Chromaturia [Recovered/Resolved]
  - Saliva altered [Not Recovered/Not Resolved]
  - Fall [Recovered/Resolved]
  - Malaise [Not Recovered/Not Resolved]
  - Blood glucose increased [Not Recovered/Not Resolved]
  - Asthenia [Recovered/Resolved]
  - Sinusitis [Recovered/Resolved]
  - Metastases to lymph nodes [Not Recovered/Not Resolved]
  - Dyspepsia [Recovered/Resolved]
  - Joint dislocation [Recovered/Resolved]
  - Pancreatic carcinoma [Not Recovered/Not Resolved]
  - Faeces pale [Recovered/Resolved]
  - Psoriasis [Unknown]
  - Psoriatic arthropathy [Unknown]
  - Weight decreased [Not Recovered/Not Resolved]

NARRATIVE: CASE EVENT DATE: 2010
